FAERS Safety Report 7788040-6 (Version None)
Quarter: 2011Q3

REPORT INFORMATION
  Report Type: 
  Country: None (occurrence: None)
  Receive Date: 20110927
  Receipt Date: 20110914
  Transmission Date: 20111222
  Serious: Yes (Other)
  Sender: FDA-Public Use
  Company Number: AUR-APL-2011-05070

PATIENT
  Age: 22 Year
  Sex: Male
  Weight: 75 kg

DRUGS (6)
  1. LAMOTRIGINE [Concomitant]
  2. SULPIRIDE (SULPIRIDE) [Concomitant]
  3. SERTTRALINE (SERTRALINE) [Concomitant]
  4. AMOXICILLIN [Suspect]
     Indication: ORAL INFECTION
     Dosage: (250 MG), ORAL
     Route: 048
     Dates: start: 20110825, end: 20110830
  5. TOPIRAMATE [Concomitant]
  6. KALMS (KALMS/ 00796301/) [Concomitant]

REACTIONS (2)
  - RASH MACULO-PAPULAR [None]
  - MOUTH ULCERATION [None]
